FAERS Safety Report 24330369 (Version 1)
Quarter: 2024Q3

REPORT INFORMATION
  Report Type: Spontaneous
  Country: US (occurrence: US)
  Receive Date: 20240918
  Receipt Date: 20240918
  Transmission Date: 20241016
  Serious: Yes (Other)
  Sender: STRIDES
  Company Number: US-STRIDES ARCOLAB LIMITED-2024SP011813

PATIENT
  Age: 77 Year
  Sex: Male

DRUGS (16)
  1. MINOCYCLINE [Suspect]
     Active Substance: MINOCYCLINE HYDROCHLORIDE
     Indication: Lepromatous leprosy
     Dosage: 100 MILLIGRAM, ONCE A MONTH
     Route: 065
  2. MINOCYCLINE [Suspect]
     Active Substance: MINOCYCLINE HYDROCHLORIDE
     Indication: Borderline leprosy
  3. METHOTREXATE [Suspect]
     Active Substance: METHOTREXATE
     Indication: Type 2 lepra reaction
     Dosage: UNK, RECEIVED LOW DOSE
     Route: 065
  4. METHOTREXATE [Suspect]
     Active Substance: METHOTREXATE
     Indication: Type IV hypersensitivity reaction
  5. METHOTREXATE [Suspect]
     Active Substance: METHOTREXATE
     Indication: Immunomodulatory therapy
  6. METHOTREXATE [Suspect]
     Active Substance: METHOTREXATE
     Indication: Borderline leprosy
  7. METHOTREXATE [Suspect]
     Active Substance: METHOTREXATE
     Indication: Lepromatous leprosy
  8. RIFAMPIN [Suspect]
     Active Substance: RIFAMPIN
     Indication: Borderline leprosy
     Dosage: 600 MILLIGRAM, ONCE A MONTH
     Route: 065
  9. RIFAMPIN [Suspect]
     Active Substance: RIFAMPIN
     Indication: Lepromatous leprosy
  10. MOXIFLOXACIN [Suspect]
     Active Substance: MOXIFLOXACIN
     Indication: Borderline leprosy
     Dosage: 400 MILLIGRAM, ONCE A MONTH
     Route: 065
  11. MOXIFLOXACIN [Suspect]
     Active Substance: MOXIFLOXACIN
     Indication: Lepromatous leprosy
  12. PREDNISONE [Concomitant]
     Active Substance: PREDNISONE
     Indication: Type IV hypersensitivity reaction
     Dosage: UNK, RECEIVED LOW DOSE
     Route: 065
  13. PREDNISONE [Concomitant]
     Active Substance: PREDNISONE
     Indication: Type 2 lepra reaction
  14. PREDNISONE [Concomitant]
     Active Substance: PREDNISONE
     Indication: Immunomodulatory therapy
  15. PREDNISONE [Concomitant]
     Active Substance: PREDNISONE
     Indication: Borderline leprosy
  16. PREDNISONE [Concomitant]
     Active Substance: PREDNISONE
     Indication: Lepromatous leprosy

REACTIONS (4)
  - Type 2 lepra reaction [Unknown]
  - Gastrointestinal disorder [Unknown]
  - Type IV hypersensitivity reaction [Unknown]
  - Off label use [Unknown]
